FAERS Safety Report 26034592 (Version 1)
Quarter: 2025Q4

REPORT INFORMATION
  Report Type: Spontaneous
  Country: CA (occurrence: CA)
  Receive Date: 20251112
  Receipt Date: 20251112
  Transmission Date: 20260117
  Serious: Yes (Hospitalization)
  Sender: B. BRAUN MEDICAL INC.
  Company Number: None

PATIENT
  Age: 78 Year
  Sex: Female
  Weight: 43 kg

DRUGS (1)
  1. HEPARIN [Suspect]
     Active Substance: HEPARIN SODIUM
     Indication: Mitral valve prolapse

REACTIONS (8)
  - Coronary artery embolism [Recovering/Resolving]
  - Embolic stroke [Recovering/Resolving]
  - Haemorrhagic transformation stroke [Recovering/Resolving]
  - Ischaemic stroke [Recovering/Resolving]
  - Platelet count decreased [Recovering/Resolving]
  - Speech disorder [Recovering/Resolving]
  - Swelling [Recovering/Resolving]
  - Thrombosis [Recovering/Resolving]
